FAERS Safety Report 18952648 (Version 1)
Quarter: 2021Q1

REPORT INFORMATION
  Report Type: Spontaneous
  Country: DE (occurrence: DE)
  Receive Date: 20210301
  Receipt Date: 20210301
  Transmission Date: 20210420
  Serious: Yes (Other)
  Sender: FDA-Public Use
  Company Number: DE-PFIZER INC-04H-062-0267264-00

PATIENT
  Age: 55 Year
  Sex: Male

DRUGS (1)
  1. HEPARIN SODIUM. [Suspect]
     Active Substance: HEPARIN SODIUM
     Indication: NEURITIS
     Dosage: UNK

REACTIONS (2)
  - Heparin-induced thrombocytopenia [Recovered/Resolved]
  - Transient ischaemic attack [Recovered/Resolved]
